FAERS Safety Report 12201016 (Version 1)
Quarter: 2016Q1

REPORT INFORMATION
  Report Type: Spontaneous
  Country: DE (occurrence: DE)
  Receive Date: 20160322
  Receipt Date: 20160322
  Transmission Date: 20160526
  Serious: Yes (Other)
  Sender: FDA-Public Use
  Company Number: GXKR2016DE001408

PATIENT
  Sex: Female

DRUGS (1)
  1. MOMETAHEXAL [Suspect]
     Active Substance: MOMETASONE
     Indication: SINUSITIS
     Dosage: 2 DF, B(1 PUFF IN EACH NARE THE MORNING AND EVENING)
     Route: 045
     Dates: end: 20160310

REACTIONS (5)
  - Faeces discoloured [Recovered/Resolved]
  - Eyelid oedema [Unknown]
  - Gastric haemorrhage [Unknown]
  - Calcium deficiency [Unknown]
  - Swelling face [Unknown]
